FAERS Safety Report 4951694-3 (Version None)
Quarter: 2006Q1

REPORT INFORMATION
  Report Type: 
  Country: None (occurrence: None)
  Receive Date: 20060322
  Receipt Date: 20060322
  Transmission Date: 20060701
  Serious: Yes (Hospitalization)
  Sender: FDA-Public Use
  Company Number: None

PATIENT
  Age: 88 Year
  Sex: Female

DRUGS (2)
  1. CARDIZEM CD [Suspect]
     Indication: HYPERTENSION
     Dosage: 120 MG DAILY PO
     Route: 048
     Dates: start: 20050101, end: 20051207
  2. REMERON [Suspect]
     Indication: ORAL INTAKE REDUCED
     Dosage: 7.5 MG DAILY PO
     Route: 048
     Dates: start: 20051126, end: 20051204

REACTIONS (8)
  - ALANINE AMINOTRANSFERASE INCREASED [None]
  - ASPARTATE AMINOTRANSFERASE INCREASED [None]
  - BLOOD ALKALINE PHOSPHATASE INCREASED [None]
  - BLOOD BILIRUBIN INCREASED [None]
  - DEHYDRATION [None]
  - DYSPHAGIA [None]
  - LABORATORY TEST ABNORMAL [None]
  - ORAL INTAKE REDUCED [None]
